FAERS Safety Report 10652371 (Version 6)
Quarter: 2015Q2

REPORT INFORMATION
  Report Type: Report from Study
  Country: SE (occurrence: SE)
  Receive Date: 20141215
  Receipt Date: 20150626
  Transmission Date: 20150821
  Serious: Yes (Hospitalization, Other)
  Sender: FDA-Public Use
  Company Number: SE-ABBVIE-14P-150-1316795-00

PATIENT
  Age: 26 Year
  Sex: Male

DRUGS (6)
  1. HUMIRA [Suspect]
     Active Substance: ADALIMUMAB
     Indication: COLITIS ULCERATIVE
     Route: 058
     Dates: start: 20131218
  2. URSOFALK [Concomitant]
     Active Substance: URSODIOL
     Indication: CHOLANGITIS SCLEROSING
     Route: 048
     Dates: start: 20080108
  3. REMICADE [Concomitant]
     Active Substance: INFLIXIMAB
     Indication: COLITIS ULCERATIVE
     Route: 041
     Dates: start: 20140819
  4. HUMIRA [Suspect]
     Active Substance: ADALIMUMAB
     Route: 058
     Dates: start: 20140523, end: 20140812
  5. PENTASA [Concomitant]
     Active Substance: MESALAMINE
     Indication: COLITIS ULCERATIVE
     Route: 048
     Dates: start: 20100208
  6. SOLU-CORTEF [Concomitant]
     Active Substance: HYDROCORTISONE SODIUM SUCCINATE
     Indication: COLITIS ULCERATIVE
     Dosage: ONCE
     Route: 042
     Dates: start: 20140812, end: 20140812

REACTIONS (1)
  - Cholangiocarcinoma [Not Recovered/Not Resolved]

NARRATIVE: CASE EVENT DATE: 20140904
